FAERS Safety Report 20930153 (Version 3)
Quarter: 2022Q3

REPORT INFORMATION
  Report Type: Report from Study
  Country: US (occurrence: US)
  Receive Date: 20220608
  Receipt Date: 20220902
  Transmission Date: 20221026
  Serious: Yes (Hospitalization)
  Sender: FDA-Public Use
  Company Number: US-BRISTOL-MYERS SQUIBB COMPANY-2022-036019

PATIENT
  Age: 64 Year
  Sex: Male

DRUGS (6)
  1. AZACITIDINE [Suspect]
     Active Substance: AZACITIDINE
     Indication: Myelodysplastic syndrome
     Dosage: 7 DAYS WITHIN THE FIRST 9 CALENDAR DAYS PER 28-DAY CYCLE
     Route: 058
     Dates: start: 20220404, end: 20220412
  2. AZACITIDINE [Suspect]
     Active Substance: AZACITIDINE
     Route: 058
     Dates: start: 20220509
  3. VENETOCLAX [Suspect]
     Active Substance: VENETOCLAX
     Indication: Myelodysplastic syndrome
     Dosage: 14 DAYS ON, 14 DAYS OFF
     Route: 048
     Dates: start: 20220404, end: 20220417
  4. VENETOCLAX [Suspect]
     Active Substance: VENETOCLAX
     Dosage: 14 DAYS ON, 14 DAYS OFF
     Route: 048
     Dates: start: 20220509
  5. NICOTINE TRANSDERMAL SYSTEM [Concomitant]
     Active Substance: NICOTINE
     Indication: Ex-tobacco user
     Route: 061
     Dates: start: 20220207
  6. LASIX [Concomitant]
     Active Substance: FUROSEMIDE
     Indication: Oedema peripheral
     Dosage: 1 AS REQUIRED
     Route: 048
     Dates: start: 20220207

REACTIONS (1)
  - Abscess oral [Recovered/Resolved]

NARRATIVE: CASE EVENT DATE: 20220428
